FAERS Safety Report 13953642 (Version 2)
Quarter: 2017Q4

REPORT INFORMATION
  Report Type: Report from Study
  Country: JP (occurrence: JP)
  Receive Date: 20170911
  Receipt Date: 20171125
  Transmission Date: 20180320
  Serious: Yes (Other)
  Sender: FDA-Public Use
  Company Number: JP-ROCHE-1990619

PATIENT
  Age: 8 Year
  Sex: Male

DRUGS (2)
  1. IMMUNE GLOBULIN [Concomitant]
     Active Substance: HUMAN IMMUNOGLOBULIN G
     Route: 042
  2. TOCILIZUMAB. [Suspect]
     Active Substance: TOCILIZUMAB
     Indication: KAWASAKI^S DISEASE
     Route: 042

REACTIONS (1)
  - Coronary artery aneurysm [Not Recovered/Not Resolved]
